FAERS Safety Report 7391347-8 (Version None)
Quarter: 2011Q1

REPORT INFORMATION
  Report Type: 
  Country: None (occurrence: None)
  Receive Date: 20110324
  Receipt Date: 20110310
  Transmission Date: 20110831
  Serious: Yes (Hospitalization)
  Sender: FDA-Public Use
  Company Number: 2008002689

PATIENT
  Age: 57 Year
  Sex: Male

DRUGS (11)
  1. ERLOTINIB (ERLOTINIB) (TABLET) (ERLOTINIB) [Suspect]
     Indication: LUNG ADENOCARCINOMA
     Dosage: (150 MG,QD),ORAL ; (100 MG,QD),ORAL ; (75 MG,QD),ORAL
     Route: 048
     Dates: start: 20080623, end: 20080707
  2. ERLOTINIB (ERLOTINIB) (TABLET) (ERLOTINIB) [Suspect]
     Indication: LUNG ADENOCARCINOMA
     Dosage: (150 MG,QD),ORAL ; (100 MG,QD),ORAL ; (75 MG,QD),ORAL
     Route: 048
     Dates: start: 20080708, end: 20080821
  3. ERLOTINIB (ERLOTINIB) (TABLET) (ERLOTINIB) [Suspect]
     Indication: LUNG ADENOCARCINOMA
     Dosage: (150 MG,QD),ORAL ; (100 MG,QD),ORAL ; (75 MG,QD),ORAL
     Route: 048
     Dates: start: 20080519, end: 20090122
  4. MUCOSAL (ACETYLCYSTEINE) [Concomitant]
  5. MOBIC [Concomitant]
  6. FAMOTIDINE [Concomitant]
  7. LOXOPROFEN (LOXOPROFEN) [Concomitant]
  8. MUCOSTA (REBAMIPIDE) [Concomitant]
  9. TEGRETOL [Concomitant]
  10. BISOLVON (BROMHEXINE HYDROCHLORIDE) [Concomitant]
  11. CODEINE PHOSPHATE (CODEINE PHOSPHATE) [Concomitant]

REACTIONS (7)
  - PNEUMOTHORAX [None]
  - RASH [None]
  - DYSPNOEA [None]
  - CHRONIC OBSTRUCTIVE PULMONARY DISEASE [None]
  - EMPHYSEMA [None]
  - LUNG ADENOCARCINOMA [None]
  - NEOPLASM MALIGNANT [None]
